FAERS Safety Report 22613242 (Version 2)
Quarter: 2023Q2

REPORT INFORMATION
  Report Type: Spontaneous
  Country: FR (occurrence: FR)
  Receive Date: 20230618
  Receipt Date: 20230626
  Transmission Date: 20230721
  Serious: Yes (Other)
  Sender: FDA-Public Use
  Company Number: FR-CELLTRION INC.-2023FR012177

PATIENT

DRUGS (1)
  1. INFLIXIMAB [Suspect]
     Active Substance: INFLIXIMAB
     Indication: Crohn^s disease
     Dosage: 120 MG, 1/WEEK (END OF MARCH/BEGINNING OF APRIL 2023)/SWITCHED TO REMSIMA 120 MG MORE THAN 6 MONTHS
     Route: 058

REACTIONS (2)
  - Crohn^s disease [Unknown]
  - Intentional product use issue [Unknown]
